FAERS Safety Report 4317228-1 (Version None)
Quarter: 2004Q1

REPORT INFORMATION
  Report Type: 
  Country: None (occurrence: None)
  Receive Date: 20040311
  Receipt Date: 20040224
  Transmission Date: 20041129
  Serious: Yes (Disabling)
  Sender: FDA-Public Use
  Company Number: HQWYE389827AUG03

PATIENT
  Age: 43 Year
  Sex: Male
  Weight: 102.15 kg

DRUGS (13)
  1. EFFEXOR XR [Suspect]
     Indication: MAJOR DEPRESSION
  2. EFFEXOR XR [Suspect]
     Indication: PANIC DISORDER
  3. ALCOHOL (ETHANOL, ) [Suspect]
  4. VASOTEC [Concomitant]
  5. ZOCOR [Concomitant]
  6. ULTRAM [Concomitant]
  7. MARIJUANA (CANNABIS) [Concomitant]
  8. ATIVAN [Concomitant]
  9. OXAPROZIN [Concomitant]
  10. LIPITOR [Concomitant]
  11. VIOXX [Concomitant]
  12. METAXALONE [Concomitant]
  13. DARVOET-N (DEXTROPROPOXYPHENE/PARACETAMOL) [Concomitant]

REACTIONS (20)
  - ANXIETY [None]
  - ARTHROPATHY [None]
  - BLOOD CHOLESTEROL INCREASED [None]
  - BLOOD TRIGLYCERIDES INCREASED [None]
  - DRUG DEPENDENCE [None]
  - DRUG WITHDRAWAL SYNDROME [None]
  - ERECTILE DYSFUNCTION [None]
  - FALL [None]
  - FEELING ABNORMAL [None]
  - HEPATIC NEOPLASM [None]
  - HEPATOCELLULAR DAMAGE [None]
  - HYPERTENSION [None]
  - HYPOAESTHESIA [None]
  - JOINT SPRAIN [None]
  - LOSS OF CONSCIOUSNESS [None]
  - MAJOR DEPRESSION [None]
  - PANIC DISORDER [None]
  - POST-TRAUMATIC STRESS DISORDER [None]
  - STRESS SYMPTOMS [None]
  - WEIGHT INCREASED [None]
